FAERS Safety Report 10716491 (Version 1)
Quarter: 2015Q1

REPORT INFORMATION
  Report Type: Report from Study
  Country: US (occurrence: US)
  Receive Date: 20150116
  Receipt Date: 20150116
  Transmission Date: 20150721
  Serious: Yes (Hospitalization)
  Sender: FDA-Public Use
  Company Number: US-TAKEDA-2014MPI002471

PATIENT
  Age: 48 Year
  Sex: Male

DRUGS (1)
  1. VELCADE [Suspect]
     Active Substance: BORTEZOMIB
     Indication: PLASMA CELL MYELOMA
     Dosage: 2.6 MG, ON DAYS 1,4,8 AND 11 OF EVERY 21 DAYS.
     Route: 058

REACTIONS (2)
  - Hospitalisation [Unknown]
  - Constipation [Unknown]

NARRATIVE: CASE EVENT DATE: 20140715
